FAERS Safety Report 9855611 (Version 3)
Quarter: 2014Q3

REPORT INFORMATION
  Report Type: Spontaneous
  Country: US (occurrence: US)
  Receive Date: 20140130
  Receipt Date: 20140909
  Transmission Date: 20150326
  Serious: Yes (Hospitalization, Other)
  Sender: FDA-Public Use
  Company Number: US-BAYER-2014-012538

PATIENT
  Age: 22 Year
  Sex: Female

DRUGS (1)
  1. MIRENA [Suspect]
     Active Substance: LEVONORGESTREL
     Indication: CONTRACEPTION
     Dosage: 20 MCG/24HR, CONT
     Route: 015
     Dates: start: 20110610, end: 20131007

REACTIONS (8)
  - Anaemia [None]
  - Uterine perforation [None]
  - Device issue [None]
  - Medical device pain [None]
  - Medical device discomfort [None]
  - Stress [None]
  - Genital haemorrhage [None]
  - Injury [None]

NARRATIVE: CASE EVENT DATE: 2013
